FAERS Safety Report 14471388 (Version 1)
Quarter: 2018Q1

REPORT INFORMATION
  Report Type: Spontaneous
  Country: FR (occurrence: FR)
  Receive Date: 20180131
  Receipt Date: 20180131
  Transmission Date: 20180509
  Serious: Yes (Hospitalization)
  Sender: FDA-Public Use
  Company Number: FR-TEVA-2018-FR-850320

PATIENT
  Age: 66 Year
  Sex: Female
  Weight: 66 kg

DRUGS (9)
  1. THERALENE [Concomitant]
     Active Substance: TRIMEPRAZINE
  2. MOCLAMINE 150 MG, COMPRIM? PELLICUL? S?CABLE [Concomitant]
  3. ATACAND 4 MG, COMPRIM? S?CABLE [Concomitant]
  4. DAFALGAN [Concomitant]
     Active Substance: ACETAMINOPHEN
  5. TERALITHE [Suspect]
     Active Substance: LITHIUM CARBONATE
     Indication: BIPOLAR DISORDER
     Route: 048
     Dates: end: 201603
  6. CALCIDOSE 500, POUDRE POUR SUSPENSION BUVABLE EN SACHET [Concomitant]
  7. VENLAFAXINE (CHLORHYDRATE DE) [Suspect]
     Active Substance: VENLAFAXINE HYDROCHLORIDE
     Indication: BIPOLAR DISORDER
     Route: 048
     Dates: end: 201603
  8. ELIQUIS [Concomitant]
     Active Substance: APIXABAN
  9. CLOZAPINE. [Suspect]
     Active Substance: CLOZAPINE
     Indication: BIPOLAR DISORDER
     Route: 048

REACTIONS (2)
  - Generalised tonic-clonic seizure [Recovered/Resolved]
  - Status epilepticus [Recovered/Resolved]

NARRATIVE: CASE EVENT DATE: 20160308
